FAERS Safety Report 9851633 (Version 4)
Quarter: 2014Q1

REPORT INFORMATION
  Report Type: Spontaneous
  Country: JP (occurrence: JP)
  Receive Date: 20140129
  Receipt Date: 20140313
  Transmission Date: 20141002
  Serious: Yes (Hospitalization)
  Sender: FDA-Public Use
  Company Number: JP-AMGEN-JPNSP2014005853

PATIENT
  Age: 73 Year
  Sex: Male
  Weight: 66.8 kg

DRUGS (8)
  1. ENBREL [Suspect]
     Indication: RHEUMATOID ARTHRITIS
     Dosage: 25 MG, EVERY 2 WEEKS
     Route: 058
     Dates: end: 20131215
  2. METHOTREXATE [Concomitant]
     Indication: RHEUMATOID ARTHRITIS
     Dosage: 12.5 MG, WEEKLY
     Route: 048
     Dates: end: 20140109
  3. NU LOTAN [Concomitant]
     Indication: CARDIAC FAILURE
     Dosage: 25 MG, 1X/DAY
     Route: 048
  4. MAINTATE [Concomitant]
     Indication: CARDIAC FAILURE
     Dosage: 2.5 MG, 1X/DAY
     Route: 048
  5. NEUROVITAN                         /00280501/ [Concomitant]
     Indication: DRUG THERAPY
     Dosage: 2 DF, WEEKLY
     Route: 048
  6. TOYOFAROL [Concomitant]
     Indication: DRUG THERAPY
     Dosage: 1.0 UG, 1X/DAY
     Route: 048
  7. FOLIAMIN [Concomitant]
     Indication: DRUG THERAPY
     Dosage: 10 MG, WEEKLY
     Route: 048
  8. BACTRAMIN [Concomitant]
     Indication: DRUG THERAPY
     Dosage: 4 DF, WEEKLY
     Route: 048

REACTIONS (2)
  - Rectal cancer stage II [Recovering/Resolving]
  - Cholelithiasis [Unknown]
